APPROVED DRUG PRODUCT: PERMETHRIN
Active Ingredient: PERMETHRIN
Strength: 5%
Dosage Form/Route: CREAM;TOPICAL
Application: A209732 | Product #001
Applicant: DR REDDYS LABORATORIES EU LTD
Approved: Aug 1, 2023 | RLD: No | RS: No | Type: DISCN